FAERS Safety Report 19598870 (Version 1)
Quarter: 2021Q3

REPORT INFORMATION
  Report Type: Spontaneous
  Country: US (occurrence: US)
  Receive Date: 20210721
  Receipt Date: 20210721
  Transmission Date: 20211014
  Serious: Yes (Other)
  Sender: FDA-Public Use
  Company Number: None

PATIENT
  Age: 65 Year
  Sex: Male
  Weight: 65.8 kg

DRUGS (9)
  1. ELIQUIS [Suspect]
     Active Substance: APIXABAN
     Route: 048
     Dates: start: 20210514
  2. TYLENOL [Concomitant]
     Active Substance: ACETAMINOPHEN
  3. LOVENOX [Suspect]
     Active Substance: ENOXAPARIN SODIUM
     Route: 058
     Dates: start: 20210512, end: 20210513
  4. OXYCODONE [Concomitant]
     Active Substance: OXYCODONE
  5. TAMSULOSIN [Concomitant]
     Active Substance: TAMSULOSIN
  6. COPANLISIB. [Suspect]
     Active Substance: COPANLISIB
     Indication: PROSTATE CANCER METASTATIC
     Dosage: ?          OTHER FREQUENCY:D1, D15;?
     Route: 042
  7. FENTANYL. [Concomitant]
     Active Substance: FENTANYL
  8. MILK OF MAGNESIA [Concomitant]
     Active Substance: MAGNESIUM HYDROXIDE
  9. RUCAPARIB [Suspect]
     Active Substance: RUCAPARIB
     Indication: PROSTATE CANCER METASTATIC
     Route: 048

REACTIONS (2)
  - Peripheral swelling [None]
  - Pulmonary embolism [None]
